FAERS Safety Report 10645653 (Version 1)
Quarter: 2014Q4

REPORT INFORMATION
  Report Type: Spontaneous
  Country: US (occurrence: None)
  Receive Date: 20141210
  Receipt Date: 20141210
  Transmission Date: 20150529
  Serious: Yes (Disabling)
  Sender: FDA-Public Use
  Company Number: None

PATIENT
  Age: 21 Year
  Sex: Female
  Weight: 58.97 kg

DRUGS (4)
  1. LEVOCETIRIZINE [Suspect]
     Active Substance: LEVOCETIRIZINE
     Indication: URTICARIA
     Dosage: 1
     Route: 048
     Dates: start: 20141025, end: 20141126
  2. ALEVE [Concomitant]
     Active Substance: NAPROXEN SODIUM
  3. LEENA [Concomitant]
     Active Substance: ETHINYL ESTRADIOL\NORETHINDRONE
  4. IBUPROFEN. [Concomitant]
     Active Substance: IBUPROFEN

REACTIONS (10)
  - Urticaria [None]
  - Discomfort [None]
  - Peripheral swelling [None]
  - Eye swelling [None]
  - Nausea [None]
  - Product substitution issue [None]
  - Eye pruritus [None]
  - Lip swelling [None]
  - Rash pruritic [None]
  - Abdominal discomfort [None]

NARRATIVE: CASE EVENT DATE: 20141117
